FAERS Safety Report 24917093 (Version 1)
Quarter: 2025Q1

REPORT INFORMATION
  Report Type: Spontaneous
  Country: ES (occurrence: ES)
  Receive Date: 20250203
  Receipt Date: 20250203
  Transmission Date: 20250409
  Serious: Yes (Hospitalization, Other)
  Sender: ALEXION PHARMACEUTICALS
  Company Number: None

PATIENT
  Age: 71 Year

DRUGS (2)
  1. IMFINZI [Interacting]
     Active Substance: DURVALUMAB
     Indication: Lung carcinoma cell type unspecified stage IV
  2. OMNIPAQUE [Interacting]
     Active Substance: IOHEXOL
     Indication: Computerised tomogram head

REACTIONS (3)
  - Immune-mediated thyroiditis [Recovering/Resolving]
  - Condition aggravated [Recovering/Resolving]
  - Toxic nodular goitre [Recovering/Resolving]
